FAERS Safety Report 17665037 (Version 3)
Quarter: 2021Q4

REPORT INFORMATION
  Report Type: Report from Study
  Country: JP (occurrence: JP)
  Receive Date: 20200414
  Receipt Date: 20211014
  Transmission Date: 20220303
  Serious: Yes (Hospitalization)
  Sender: FDA-Public Use
  Company Number: JP-CHUGAI-A2020018569ROCHE

PATIENT

DRUGS (4)
  1. CAPECITABINE [Suspect]
     Active Substance: CAPECITABINE
     Indication: Small intestine adenocarcinoma
     Dosage: DOSAGE IS UNCERTAIN.
     Route: 048
     Dates: start: 20190826, end: 20190909
  2. CAPECITABINE [Suspect]
     Active Substance: CAPECITABINE
     Dosage: DOSAGE IS UNCERTAIN.
     Route: 048
     Dates: start: 20191007
  3. OXALIPLATIN [Suspect]
     Active Substance: OXALIPLATIN
     Indication: Small intestine adenocarcinoma
     Dosage: DOSAGE IS UNCERTAIN.
     Route: 041
     Dates: start: 20190826, end: 20190826
  4. OXALIPLATIN [Suspect]
     Active Substance: OXALIPLATIN
     Dosage: DOSAGE IS UNCERTAIN.
     Route: 041
     Dates: start: 20191007, end: 20191007

REACTIONS (5)
  - Alanine aminotransferase increased [Recovered/Resolved]
  - Aspartate aminotransferase increased [Recovered/Resolved]
  - Biliary tract infection [Unknown]
  - Biliary anastomosis complication [Unknown]
  - Off label use [Unknown]

NARRATIVE: CASE EVENT DATE: 20190917
